FAERS Safety Report 9171406 (Version 1)
Quarter: 2013Q1

REPORT INFORMATION
  Report Type: Report from Study
  Country: GB (occurrence: GB)
  Receive Date: 20130319
  Receipt Date: 20130319
  Transmission Date: 20140127
  Serious: Yes (Death)
  Sender: FDA-Public Use
  Company Number: GB-SANOFI-AVENTIS-2013SA027544

PATIENT
  Sex: 0

DRUGS (3)
  1. OXALIPLATIN [Suspect]
     Indication: GERM CELL CANCER
     Route: 065
  2. PACLITAXEL [Suspect]
     Indication: GERM CELL CANCER
     Dosage: RECEIVED WEEKLY IN EVERY 3 WEEK CYCLE.
     Route: 065
  3. IRINOTECAN [Suspect]
     Indication: GERM CELL CANCER
     Route: 065

REACTIONS (1)
  - Death [Fatal]
